FAERS Safety Report 25390462 (Version 5)
Quarter: 2025Q3

REPORT INFORMATION
  Report Type: Spontaneous
  Country: US (occurrence: US)
  Receive Date: 20250603
  Receipt Date: 20250711
  Transmission Date: 20251020
  Serious: No
  Sender: Haleon PLC
  Company Number: US-HALEON-2245157

PATIENT

DRUGS (3)
  1. NICODERM CQ [Suspect]
     Active Substance: NICOTINE
     Indication: Smoking cessation therapy
  2. NICODERM CQ [Suspect]
     Active Substance: NICOTINE
  3. NICODERM CQ [Suspect]
     Active Substance: NICOTINE

REACTIONS (5)
  - Application site irritation [Unknown]
  - Drug ineffective [Unknown]
  - Wrong technique in product usage process [Unknown]
  - Product adhesion issue [Unknown]
  - Application site exfoliation [Unknown]
